FAERS Safety Report 6171915-1 (Version None)
Quarter: 2009Q2

REPORT INFORMATION
  Report Type: 
  Country: None (occurrence: None)
  Receive Date: 20090429
  Receipt Date: 20090423
  Transmission Date: 20091009
  Serious: Yes (Hospitalization, Other)
  Sender: FDA-Public Use
  Company Number: US-MERCK-0809USA03249

PATIENT
  Age: 52 Year
  Sex: Male

DRUGS (6)
  1. JANUVIA [Suspect]
     Indication: TYPE 2 DIABETES MELLITUS
     Route: 048
     Dates: start: 20080910, end: 20080912
  2. GLIPIZIDE [Concomitant]
     Route: 065
  3. SEPTRA [Concomitant]
     Route: 065
  4. PROGRAF [Concomitant]
     Route: 065
  5. VALCYTE [Concomitant]
     Route: 065
  6. PROTONIX [Concomitant]
     Route: 065

REACTIONS (2)
  - HEPATIC ENZYME INCREASED [None]
  - LIVER DISORDER [None]
